FAERS Safety Report 12641580 (Version 1)
Quarter: 2016Q3

REPORT INFORMATION
  Report Type: Report from Study
  Country: IN (occurrence: IN)
  Receive Date: 20160810
  Receipt Date: 20160810
  Transmission Date: 20161109
  Serious: Yes (Hospitalization, Other)
  Sender: FDA-Public Use
  Company Number: IN-009507513-1608IND005242

PATIENT
  Age: 78 Year
  Sex: Male

DRUGS (1)
  1. SITAGLIPTIN PHOSPHATE (+) METFORMIN HYDROCHLORIDE [Suspect]
     Active Substance: METFORMIN HYDROCHLORIDE\SITAGLIPTIN PHOSPHATE
     Indication: DIABETES MELLITUS
     Dosage: 1 DF, OD
     Route: 048

REACTIONS (5)
  - Atrioventricular block [Unknown]
  - Blood glucose decreased [Unknown]
  - Cerebrovascular accident [Unknown]
  - Blood pressure decreased [Unknown]
  - Prostatic disorder [Unknown]
